FAERS Safety Report 10232868 (Version 2)
Quarter: 2014Q2

REPORT INFORMATION
  Report Type: Spontaneous
  Country: US (occurrence: US)
  Receive Date: 20140612
  Receipt Date: 20140612
  Transmission Date: 20141212
  Serious: No
  Sender: FDA-Public Use
  Company Number: US-ASTRAZENECA-2004UW05865

PATIENT
  Age: 82 Year
  Sex: Female
  Weight: 39 kg

DRUGS (9)
  1. TENORMIN [Suspect]
     Indication: CARDIAC DISORDER
     Route: 048
  2. TENORMIN [Suspect]
     Indication: CARDIAC DISORDER
     Dosage: HALF OF A 50 GM
     Route: 048
  3. CRESTOR [Suspect]
     Indication: HYPERCHOLESTEROLAEMIA
     Route: 048
     Dates: start: 201401
  4. CRESTOR [Suspect]
     Indication: HYPERCHOLESTEROLAEMIA
     Route: 048
     Dates: start: 201401
  5. SIMVASTATIN [Suspect]
     Route: 065
     Dates: start: 201401
  6. ZYRTEC [Concomitant]
     Indication: MULTIPLE ALLERGIES
  7. CELEXA [Concomitant]
  8. VITAMIN D [Concomitant]
  9. SPRIRIVA [Concomitant]
     Indication: CHRONIC OBSTRUCTIVE PULMONARY DISEASE

REACTIONS (13)
  - Arteriosclerosis [Unknown]
  - Muscle spasms [Unknown]
  - Muscle spasms [Unknown]
  - Diarrhoea [Unknown]
  - Vomiting [Unknown]
  - Weight decreased [Unknown]
  - Abdominal distension [Unknown]
  - Fatigue [Unknown]
  - Asthenia [Unknown]
  - Dizziness [Unknown]
  - Abdominal pain upper [Unknown]
  - Nausea [Unknown]
  - Off label use [Unknown]
